FAERS Safety Report 5858838-X (Version None)
Quarter: 2008Q3

REPORT INFORMATION
  Report Type: 
  Country: None (occurrence: None)
  Receive Date: 20080818
  Receipt Date: 20080710
  Transmission Date: 20090109
  Serious: No
  Sender: FDA-Public Use
  Company Number: WAES 0711USA04679

PATIENT
  Age: 69 Year
  Sex: Female

DRUGS (4)
  1. JANUVIA [Suspect]
     Indication: TYPE 2 DIABETES MELLITUS
     Dosage: DAILY/PO : PO
     Route: 048
     Dates: start: 20071123
  2. JANUVIA [Suspect]
     Indication: TYPE 2 DIABETES MELLITUS
     Dosage: DAILY/PO : PO
     Route: 048
     Dates: start: 20080709
  3. BIOCODEX FLORASTOR [Concomitant]
  4. VITAMINS (UNSPECIFIED) [Concomitant]

REACTIONS (4)
  - COUGH [None]
  - DRUG INEFFECTIVE [None]
  - FATIGUE [None]
  - WRONG TECHNIQUE IN DRUG USAGE PROCESS [None]
